FAERS Safety Report 4694870-X (Version None)
Quarter: 2005Q2

REPORT INFORMATION
  Report Type: 
  Country: None (occurrence: None)
  Receive Date: 20050617
  Receipt Date: 20050607
  Transmission Date: 20051028
  Serious: Yes (Disabling)
  Sender: FDA-Public Use
  Company Number: 231995K05USA

PATIENT
  Age: 52 Year
  Sex: Female

DRUGS (6)
  1. REBIF [Suspect]
     Indication: MULTIPLE SCLEROSIS
     Dosage: 44 MCG, 3 IN 1 WEEKS, SUBCUTANEOUS
     Route: 058
     Dates: start: 20020429, end: 20050429
  2. PROGESTERONE / ESTROGEN COMPOUND (PROGESTERONE W/ESTROGENS/) [Concomitant]
  3. XANAX [Concomitant]
  4. ZOFRAN [Concomitant]
  5. MAALOX (MAALOX) [Concomitant]
  6. IMITREX [Concomitant]

REACTIONS (10)
  - BLINDNESS [None]
  - GAIT DISTURBANCE [None]
  - INFLUENZA LIKE ILLNESS [None]
  - INJECTION SITE PAIN [None]
  - INSOMNIA [None]
  - NYSTAGMUS [None]
  - OPHTHALMOPLEGIA [None]
  - UTERINE POLYP [None]
  - VISUAL ACUITY REDUCED [None]
  - WALKING AID USER [None]
